FAERS Safety Report 7190612-7 (Version None)
Quarter: 2010Q4

REPORT INFORMATION
  Report Type: 
  Country: None (occurrence: None)
  Receive Date: 20101223
  Receipt Date: 20101220
  Transmission Date: 20110411
  Serious: Yes (Hospitalization)
  Sender: FDA-Public Use
  Company Number: US-US-EMD SERONO, INC.-7028022

PATIENT
  Sex: Female
  Weight: 100 kg

DRUGS (5)
  1. REBIF [Suspect]
     Indication: MULTIPLE SCLEROSIS
     Dates: start: 20060101
  2. ZOLOFT [Concomitant]
     Indication: DEPRESSION
  3. LAMICTAL [Concomitant]
     Indication: DEPRESSION
  4. LYRICA [Concomitant]
     Indication: FIBROMYALGIA
  5. TIZANIDINE HCL [Concomitant]
     Indication: MUSCLE SPASMS

REACTIONS (4)
  - ALCOHOL ABUSE [None]
  - COLITIS [None]
  - DEPRESSION [None]
  - SUICIDAL BEHAVIOUR [None]
